FAERS Safety Report 21485814 (Version 1)
Quarter: 2022Q4

REPORT INFORMATION
  Report Type: Spontaneous
  Country: CA (occurrence: CA)
  Receive Date: 20221020
  Receipt Date: 20221020
  Transmission Date: 20230113
  Serious: Yes (Other)
  Sender: FDA-Public Use
  Company Number: CA-NOVARTISPH-NVSC2020CA357920

PATIENT
  Sex: Female

DRUGS (15)
  1. CYCLOSPORINE [Suspect]
     Active Substance: CYCLOSPORINE
     Indication: Rheumatoid arthritis
     Dosage: UNK
     Route: 048
  2. METHOTREXATE [Suspect]
     Active Substance: METHOTREXATE
     Indication: Rheumatoid arthritis
     Dosage: UNK
     Route: 065
  3. IMURAN [Suspect]
     Active Substance: AZATHIOPRINE
     Indication: Rheumatoid arthritis
     Dosage: UNK
     Route: 065
  4. IMURAN [Suspect]
     Active Substance: AZATHIOPRINE
     Indication: Rheumatoid arthritis
     Dosage: UNK
     Route: 065
  5. ACTEMRA [Suspect]
     Active Substance: TOCILIZUMAB
     Indication: Product used for unknown indication
     Dosage: 640 MG, QW
     Route: 065
  6. ARAVA [Suspect]
     Active Substance: LEFLUNOMIDE
     Indication: Rheumatoid arthritis
     Dosage: UNK
     Route: 065
  7. CIMZIA [Suspect]
     Active Substance: CERTOLIZUMAB PEGOL
     Indication: Rheumatoid arthritis
     Dosage: 200 MG, QW
     Route: 058
  8. ENBREL [Suspect]
     Active Substance: ETANERCEPT
     Indication: Rheumatoid arthritis
     Dosage: 50 MG
     Route: 065
  9. GOLD [Suspect]
     Active Substance: GOLD
     Indication: Rheumatoid arthritis
     Dosage: UNK
     Route: 065
  10. HUMIRA [Suspect]
     Active Substance: ADALIMUMAB
     Indication: Rheumatoid arthritis
     Dosage: 40 MG, QW
     Route: 058
  11. HYDROXYCHLOROQUINE [Suspect]
     Active Substance: HYDROXYCHLOROQUINE
     Indication: Rheumatoid arthritis
     Dosage: UNK
     Route: 065
  12. HYDROXYCHLOROQUINE SULFATE [Suspect]
     Active Substance: HYDROXYCHLOROQUINE SULFATE
     Indication: Rheumatoid arthritis
     Dosage: UNK
     Route: 065
  13. INFLIXIMAB [Suspect]
     Active Substance: INFLIXIMAB
     Indication: Rheumatoid arthritis
     Dosage: 300 MG, QW
     Route: 042
  14. REMICADE [Suspect]
     Active Substance: INFLIXIMAB
     Indication: Rheumatoid arthritis
     Dosage: 300 MG
     Route: 042
  15. SULFASALAZINE [Suspect]
     Active Substance: SULFASALAZINE
     Indication: Rheumatoid arthritis
     Dosage: UNK
     Route: 065

REACTIONS (4)
  - Blood iron abnormal [Unknown]
  - Rheumatoid arthritis [Unknown]
  - Drug intolerance [Unknown]
  - Drug ineffective [Unknown]
